FAERS Safety Report 7599667-9 (Version None)
Quarter: 2011Q3

REPORT INFORMATION
  Report Type: 
  Country: None (occurrence: None)
  Receive Date: 20110711
  Receipt Date: 20110627
  Transmission Date: 20111222
  Serious: Yes (Life-Threatening, Hospitalization, Other)
  Sender: FDA-Public Use
  Company Number: AU-ELI_LILLY_AND_COMPANY-AU201103003003

PATIENT

DRUGS (2)
  1. ZYPREXA [Suspect]
     Dosage: 10 MG, EACH EVENING
     Route: 064
     Dates: start: 20100601
  2. ZYPREXA [Suspect]
     Dosage: 10 MG, EACH EVENING
     Route: 064
     Dates: start: 20100601

REACTIONS (7)
  - BRADYCARDIA NEONATAL [None]
  - CARDIAC MURMUR [None]
  - FOETAL DISTRESS SYNDROME [None]
  - MATERNAL EXPOSURE DURING PREGNANCY [None]
  - HYPOTHERMIA NEONATAL [None]
  - ELECTROCARDIOGRAM QT PROLONGED [None]
  - AMNIOTIC FLUID VOLUME DECREASED [None]
